FAERS Safety Report 6374437-8 (Version None)
Quarter: 2009Q3

REPORT INFORMATION
  Report Type: 
  Country: None (occurrence: None)
  Receive Date: 20090924
  Receipt Date: 20090917
  Transmission Date: 20100115
  Serious: Yes (Hospitalization)
  Sender: FDA-Public Use
  Company Number: FR-PFIZER INC-2009159485

PATIENT
  Age: 70 Year

DRUGS (10)
  1. ATORVASTATIN CALCIUM [Suspect]
     Indication: HYPERCHOLESTEROLAEMIA
     Route: 048
     Dates: start: 20081001, end: 20081209
  2. RAMIPRIL [Suspect]
     Indication: HYPERTENSION
     Route: 048
  3. BISOPROLOL [Concomitant]
     Dosage: UNK
     Route: 048
     Dates: start: 20060101
  4. AMLODIPINE BESILATE [Concomitant]
     Dosage: UNK
     Route: 048
     Dates: start: 20060901
  5. TRINITRINE [Concomitant]
     Dosage: UNK
     Route: 062
     Dates: start: 20060901
  6. ACETYLSALICYLATE LYSINE [Concomitant]
     Dosage: UNK
     Route: 048
     Dates: start: 20051101
  7. OXAZEPAM [Concomitant]
     Route: 048
  8. TRAMADOL [Concomitant]
     Route: 048
  9. MOMETASONE FUROATE [Concomitant]
     Route: 045
  10. POTASSIUM CHLORIDE [Concomitant]

REACTIONS (4)
  - CHEST PAIN [None]
  - CHOLESTASIS [None]
  - LIPASE INCREASED [None]
  - TRANSAMINASES INCREASED [None]
